FAERS Safety Report 13017772 (Version 1)
Quarter: 2016Q4

REPORT INFORMATION
  Report Type: Spontaneous
  Country: US (occurrence: US)
  Receive Date: 20161212
  Receipt Date: 20161212
  Transmission Date: 20170207
  Serious: No
  Sender: FDA-Public Use
  Company Number: US-PFIZER INC-2016067433

PATIENT
  Age: 62 Year
  Sex: Female

DRUGS (21)
  1. TRAMADOL HCL [Concomitant]
     Active Substance: TRAMADOL HYDROCHLORIDE
     Indication: PAIN
     Dosage: 50 MG, AS NEEDED [2 TABLET AS NEEDED]
     Route: 048
  2. BYDUREON [Concomitant]
     Active Substance: EXENATIDE
     Dosage: 2 MG, WEEKLY
     Route: 058
  3. METFORMIN HCL [Concomitant]
     Active Substance: METFORMIN HYDROCHLORIDE
     Indication: TYPE 2 DIABETES MELLITUS
     Dosage: 850 MG, 2X/DAY [1 TABLET WITH A MEAL]
     Route: 048
  4. INSULIN [Concomitant]
     Active Substance: INSULIN NOS
     Dosage: UNK, 1X/DAY (INSULIN SYRINGE MICROFINE 1 ML/31 G SYRINGES) (SYRINGE 29G X 1/2)
  5. HYDROCODONE/ACETAMINOPHEN [Concomitant]
     Active Substance: ACETAMINOPHEN\HYDROCODONE
     Indication: PAIN
     Dosage: 2 DF, AS NEEDED  [HYDROCODONE: 10MG -ACETAMINOPHEN: 325MG][EVERY 6 HRS]
     Route: 048
  6. VICTOZA [Concomitant]
     Active Substance: LIRAGLUTIDE
     Indication: DIABETES MELLITUS
     Dosage: 1 MG, 1X/DAY (18 MG/3ML SOLUTION PEN- INJECTOR 1.0MG)
     Route: 058
  7. INSULIN [Concomitant]
     Active Substance: INSULIN NOS
     Dosage: UNK, 1X/DAY (INSULIN SYRINGE 29 GX 1/2 MISCELLANEOUS, AS DIRECTED IN VITRO)
     Dates: start: 20150829
  8. HYDROXYZINE HCL [Concomitant]
     Active Substance: HYDROXYZINE HYDROCHLORIDE
     Dosage: 25 MG, AS NEEDED (1 TABLET ORALLY BID; PRN)
     Route: 048
     Dates: start: 20140227
  9. AMBIEN [Concomitant]
     Active Substance: ZOLPIDEM TARTRATE
     Indication: INSOMNIA
     Dosage: 10 MG, AS NEEDED
  10. LYRICA [Suspect]
     Active Substance: PREGABALIN
     Dosage: 150 MG, 3X/DAY
     Route: 048
  11. VOLTAREN [Concomitant]
     Active Substance: DICLOFENAC SODIUM
     Indication: PAIN
  12. LYRICA [Suspect]
     Active Substance: PREGABALIN
     Indication: FIBROMYALGIA
     Dosage: 150 MG, 2X/DAY (Q 12 HR)
     Route: 048
  13. MELATONIN [Concomitant]
     Active Substance: MELATONIN
     Dosage: 3 MG, AS NEEDED (1 TABLET AT BEDTIME AS NEEDED WITH FOOD) [ONCE A DAY]
     Route: 048
  14. LEVEMIR [Concomitant]
     Active Substance: INSULIN DETEMIR
     Dosage: UNK, 1X/DAY
     Dates: start: 20130917
  15. AMOXICILLIN. [Concomitant]
     Active Substance: AMOXICILLIN
     Indication: TOOTH DISORDER
     Dosage: 875 MG, 2X/DAY (EVERY 12 HRS)
     Route: 048
  16. NORCO [Concomitant]
     Active Substance: ACETAMINOPHEN\HYDROCODONE BITARTRATE
     Dosage: UNK, AS NEEDED [HYDROCODONE BITARTRATE: 10MG- PARACETAMOL: 325MG] [EVERY 6 HRS]
     Route: 048
  17. VOLTAREN [Concomitant]
     Active Substance: DICLOFENAC SODIUM
     Indication: RHEUMATOID ARTHRITIS
     Dosage: UNK UNK, 3X/DAY (1 APPLICATION EVERY 8 HRS)
     Route: 062
  18. LANTUS [Concomitant]
     Active Substance: INSULIN GLARGINE
     Indication: DIABETES MELLITUS
     Dosage: 70 IU, 1X/DAY [70 UNITS, QHS]
     Route: 058
  19. ZOLPIDEM TARTATE [Concomitant]
     Active Substance: ZOLPIDEM TARTRATE
     Dosage: 10 MG, AS NEEDED (1 TABLET AT BEDTIME) [ONCE A DAY]
     Route: 048
  20. OMEPRAZOL [Concomitant]
     Active Substance: OMEPRAZOLE
     Dosage: 20 MG, 1X/DAY
     Route: 048
  21. ONE TOUCH [Concomitant]
     Dosage: UNK UNK, 3X/DAY
     Dates: start: 20150615

REACTIONS (2)
  - Hot flush [Unknown]
  - Off label use [Unknown]
